FAERS Safety Report 25535101 (Version 2)
Quarter: 2025Q3

REPORT INFORMATION
  Report Type: Spontaneous
  Country: CN (occurrence: CN)
  Receive Date: 20250709
  Receipt Date: 20250731
  Transmission Date: 20251021
  Serious: No
  Sender: NOVARTIS
  Company Number: CN-002147023-NVSC2025CN107804

PATIENT
  Age: 33 Year
  Sex: Female

DRUGS (17)
  1. CYCLOSPORINE [Suspect]
     Active Substance: CYCLOSPORINE
     Indication: Systemic lupus erythematosus
     Route: 065
     Dates: start: 202404
  2. HYDROXYCHLOROQUINE [Concomitant]
     Active Substance: HYDROXYCHLOROQUINE
     Indication: Systemic lupus erythematosus
     Dosage: 200 MG, BID
     Route: 065
     Dates: end: 202403
  3. HYDROXYCHLOROQUINE [Concomitant]
     Active Substance: HYDROXYCHLOROQUINE
     Dosage: 200 MG, QD
     Route: 065
     Dates: start: 202404
  4. PREDNISONE [Concomitant]
     Active Substance: PREDNISONE
     Indication: Systemic lupus erythematosus
     Route: 065
     Dates: end: 202403
  5. Immunoglobulin [Concomitant]
     Indication: Systemic lupus erythematosus
     Dosage: 0.4 GRAM PER KILOGRAM, QD
     Route: 042
  6. Immunoglobulin [Concomitant]
     Route: 042
     Dates: start: 202404
  7. METOCLOPRAMIDE [Concomitant]
     Active Substance: METOCLOPRAMIDE
     Indication: Nausea
     Route: 065
     Dates: start: 202404
  8. METOCLOPRAMIDE [Concomitant]
     Active Substance: METOCLOPRAMIDE
     Indication: Vomiting
  9. ONDANSETRON [Concomitant]
     Active Substance: ONDANSETRON
     Indication: Nausea
     Route: 065
     Dates: start: 202404
  10. ONDANSETRON [Concomitant]
     Active Substance: ONDANSETRON
     Indication: Vomiting
  11. RABEPRAZOLE [Concomitant]
     Active Substance: RABEPRAZOLE
     Indication: Nausea
     Dosage: 20 MG, QD
     Route: 065
     Dates: start: 202404
  12. RABEPRAZOLE [Concomitant]
     Active Substance: RABEPRAZOLE
     Indication: Vomiting
  13. RITUXIMAB [Concomitant]
     Active Substance: RITUXIMAB
     Indication: Neuromyelitis optica spectrum disorder
     Dosage: 500 MG, BIW (RECEIVED 2 DOSES)
     Route: 065
     Dates: start: 202407, end: 2024
  14. TELITACICEPT [Concomitant]
     Active Substance: TELITACICEPT
     Indication: Neuromyelitis optica spectrum disorder
     Route: 065
     Dates: start: 202409
  15. BACLOFEN [Concomitant]
     Active Substance: BACLOFEN
     Indication: Diaphragmatic spasm
     Route: 065
  16. METHYLPREDNISOLONE [Concomitant]
     Active Substance: METHYLPREDNISOLONE
     Indication: Systemic lupus erythematosus
     Dosage: 500 MG, QD (FOR 3 DAYS)
     Route: 042
  17. METHYLPREDNISOLONE [Concomitant]
     Active Substance: METHYLPREDNISOLONE
     Dosage: 60 MG, QD
     Route: 065
     Dates: start: 202404

REACTIONS (1)
  - Drug ineffective for unapproved indication [Unknown]

NARRATIVE: CASE EVENT DATE: 20240101
